FAERS Safety Report 7028168-1 (Version None)
Quarter: 2010Q3

REPORT INFORMATION
  Report Type: 
  Country: None (occurrence: None)
  Receive Date: 20100930
  Receipt Date: 20100922
  Transmission Date: 20110219
  Serious: Yes (Other)
  Sender: FDA-Public Use
  Company Number: CIP10002313

PATIENT
  Age: 59 Year
  Sex: Female

DRUGS (3)
  1. ACTONEL [Suspect]
     Dosage: 150MG ONCE A MONTH, ORAL
     Route: 048
     Dates: start: 20091001
  2. ALL OTHER THERAPEUTIC PRODUCTS [Concomitant]
  3. CALCIUM (CALCIUM) [Concomitant]

REACTIONS (1)
  - PERICARDIAL EFFUSION [None]
